FAERS Safety Report 12606707 (Version 2)
Quarter: 2016Q4

REPORT INFORMATION
  Report Type: Spontaneous
  Country: JP (occurrence: JP)
  Receive Date: 20160729
  Receipt Date: 20161010
  Transmission Date: 20170207
  Serious: Yes (Other)
  Sender: FDA-Public Use
  Company Number: JP-ACTELION-A-CH2016-134291

PATIENT
  Age: 86 Year
  Sex: Female

DRUGS (6)
  1. TOCOPHEROL [Concomitant]
     Active Substance: TOCOPHEROL
  2. KETOPROFEN. [Concomitant]
     Active Substance: KETOPROFEN
  3. AMLODIPINE W/TELMISARTAN [Concomitant]
  4. EPERISONE HYDROCHLORIDE [Concomitant]
     Active Substance: EPERISONE HYDROCHLORIDE
  5. AMLODIPINE [Concomitant]
     Active Substance: AMLODIPINE BESYLATE
  6. TRACLEER [Suspect]
     Active Substance: BOSENTAN
     Indication: SCLERODERMA ASSOCIATED DIGITAL ULCER
     Dosage: 62.5 MG, BID
     Route: 048
     Dates: start: 20151027, end: 20160218

REACTIONS (5)
  - Oedema peripheral [Recovering/Resolving]
  - Cardiothoracic ratio increased [Recovering/Resolving]
  - Cardiomegaly [Recovering/Resolving]
  - Oxygen saturation decreased [Recovering/Resolving]
  - Cardiac failure congestive [Recovering/Resolving]

NARRATIVE: CASE EVENT DATE: 20160210
